FAERS Safety Report 7595270-5 (Version None)
Quarter: 2011Q3

REPORT INFORMATION
  Report Type: 
  Country: None (occurrence: None)
  Receive Date: 20110707
  Receipt Date: 20110704
  Transmission Date: 20111222
  Serious: Yes (Death, Other)
  Sender: FDA-Public Use
  Company Number: CN-PFIZER INC-2011141888

PATIENT
  Age: 45 Year
  Sex: Male

DRUGS (1)
  1. SUTENT [Suspect]
     Indication: GASTROINTESTINAL STROMAL TUMOUR
     Dosage: UNK

REACTIONS (6)
  - HAEMATURIA [None]
  - RETINAL HAEMORRHAGE [None]
  - DISEASE PROGRESSION [None]
  - RENAL HAEMORRHAGE [None]
  - HAEMATEMESIS [None]
  - GASTROINTESTINAL STROMAL TUMOUR [None]
